FAERS Safety Report 18119956 (Version 2)
Quarter: 2020Q4

REPORT INFORMATION
  Report Type: Spontaneous
  Country: IT (occurrence: IT)
  Receive Date: 20200806
  Receipt Date: 20201007
  Transmission Date: 20210113
  Serious: Yes (Other)
  Sender: FDA-Public Use
  Company Number: IT-UCBSA-2020030571

PATIENT
  Age: 64 Year
  Sex: Male

DRUGS (6)
  1. ONGENTYS [Suspect]
     Active Substance: OPICAPONE
     Indication: ON AND OFF PHENOMENON
     Dosage: UNK
  2. NEUPRO [Suspect]
     Active Substance: ROTIGOTINE
     Indication: OFF LABEL USE
  3. NEUPRO [Suspect]
     Active Substance: ROTIGOTINE
     Indication: ON AND OFF PHENOMENON
     Dosage: UNKNOWN
  4. MADOPAR [Suspect]
     Active Substance: BENSERAZIDE HYDROCHLORIDE\LEVODOPA
     Indication: ON AND OFF PHENOMENON
     Dosage: LEVODOPA DOSE: 600 (NO UNIT PROVIDED), UNKNOWN
  5. AMANTADINE. [Suspect]
     Active Substance: AMANTADINE HYDROCHLORIDE
     Indication: ON AND OFF PHENOMENON
     Dosage: UNKNOWN
  6. XADAGO [Suspect]
     Active Substance: SAFINAMIDE MESYLATE
     Indication: ON AND OFF PHENOMENON
     Dosage: UNKNOWN

REACTIONS (13)
  - Therapeutic response shortened [Unknown]
  - Freezing phenomenon [Unknown]
  - Off label use [Unknown]
  - Bradykinesia [Unknown]
  - Reduced facial expression [Unknown]
  - Constipation [Unknown]
  - Sleep disorder [Unknown]
  - Fatigue [Unknown]
  - Muscle rigidity [Unknown]
  - Balance disorder [Unknown]
  - Dystonia [Unknown]
  - Pain [Unknown]
  - Gait disturbance [Unknown]
